FAERS Safety Report 8830477 (Version 1)
Quarter: 2012Q4

REPORT INFORMATION
  Report Type: 
  Country: CA (occurrence: CA)
  Receive Date: 20121009
  Receipt Date: 20121009
  Transmission Date: 20130627
  Serious: Yes (Other)
  Sender: FDA-Public Use
  Company Number: CA-ELI_LILLY_AND_COMPANY-CA201209007723

PATIENT
  Age: 44 Year
  Sex: Female

DRUGS (7)
  1. CYMBALTA [Suspect]
     Indication: PAIN
     Dosage: 1 DF, qd
     Dates: start: 2010
  2. CYMBALTA [Suspect]
     Dosage: 30 mg, qd
     Dates: start: 20120924
  3. NABILONE [Concomitant]
  4. TRAMACET [Concomitant]
  5. MIRAPEX [Concomitant]
  6. ATIVAN [Concomitant]
  7. ZOPICLONE [Concomitant]

REACTIONS (3)
  - Gastric bypass [Unknown]
  - Abdominal pain upper [Not Recovered/Not Resolved]
  - Headache [Not Recovered/Not Resolved]
